FAERS Safety Report 9254759 (Version 1)
Quarter: 2013Q1

REPORT INFORMATION
  Report Type: Spontaneous
  Country: US (occurrence: None)
  Receive Date: 20121212
  Receipt Date: 20121212
  Transmission Date: 20140127
  Serious: No
  Sender: FDA-Public Use
  Company Number: 1209USA011314

PATIENT
  Sex: 0

DRUGS (3)
  1. VICTRELIS [Suspect]
     Indication: HEPATITIS C
     Route: 048
  2. REBETOL (RIBAVIRIN) [Suspect]
     Indication: HEPATITIS C
  3. PEGINTRON [Suspect]
     Indication: HEPATITIS C

REACTIONS (1)
  - Inappropriate schedule of drug administration [None]
